FAERS Safety Report 23962187 (Version 1)
Quarter: 2024Q2

REPORT INFORMATION
  Report Type: Spontaneous
  Country: DE (occurrence: DE)
  Receive Date: 20240611
  Receipt Date: 20240611
  Transmission Date: 20240716
  Serious: Yes (Other)
  Sender: FDA-Public Use
  Company Number: DE-SUN PHARMACEUTICAL INDUSTRIES LTD-2023R1-420795

PATIENT
  Age: 20 Year
  Sex: Female

DRUGS (1)
  1. AMPHOTERICIN B [Suspect]
     Active Substance: AMPHOTERICIN B
     Indication: Pneumonia cryptococcal
     Dosage: 3 MG/KG
     Route: 065

REACTIONS (6)
  - Anaphylactic reaction [Unknown]
  - Hypokalaemia [Unknown]
  - Dyspnoea [Unknown]
  - Nausea [Unknown]
  - Tachycardia [Unknown]
  - Vomiting [Unknown]
